FAERS Safety Report 4949959-4 (Version None)
Quarter: 2006Q1

REPORT INFORMATION
  Report Type: 
  Country: None (occurrence: None)
  Receive Date: 20060315
  Receipt Date: 20060301
  Transmission Date: 20060701
  Serious: Yes (Life-Threatening, Hospitalization, Other)
  Sender: FDA-Public Use
  Company Number: USA0510112153

PATIENT
  Age: 78 Year
  Sex: Male
  Weight: 77.1 kg

DRUGS (15)
  1. SOMATROPIN (SOMATROPIN) VIAL [Suspect]
     Indication: HYPOPITUITARISM
     Dosage: 0.3 MG, DAILY (1/D), SUBCUTANEOUS
     Route: 058
     Dates: start: 20040501
  2. SIMVASTATIN [Concomitant]
  3. LISINOPRIL [Concomitant]
  4. TORSEMIDE [Concomitant]
  5. ASPIRIN [Concomitant]
  6. POTASSIUM (POTASSIUM) [Concomitant]
  7. CENTRUM [Concomitant]
  8. VERAPAMIL [Concomitant]
  9. TESTIM /USA/ (TESTOSTERONE) [Concomitant]
  10. GLIPIZIDE [Concomitant]
  11. NITROGLYCERIN [Concomitant]
  12. MICRO-K (POTASSIUM CHLORIDE) [Concomitant]
  13. FUROSEMIDE [Concomitant]
  14. NIASPAN [Concomitant]
  15. AVANDIA [Concomitant]

REACTIONS (17)
  - ANKLE FRACTURE [None]
  - BLOOD CREATININE INCREASED [None]
  - BLOOD GLUCOSE INCREASED [None]
  - BLOOD TESTOSTERONE INCREASED [None]
  - BLOOD UREA INCREASED [None]
  - EXCORIATION [None]
  - FIBULA FRACTURE [None]
  - HAEMODYNAMIC INSTABILITY [None]
  - INSULIN-LIKE GROWTH FACTOR INCREASED [None]
  - LEG AMPUTATION [None]
  - PHARMACEUTICAL PRODUCT COMPLAINT [None]
  - RENAL FAILURE ACUTE [None]
  - RESPIRATORY FAILURE [None]
  - ROAD TRAFFIC ACCIDENT [None]
  - SHOCK HAEMORRHAGIC [None]
  - TIBIA FRACTURE [None]
  - WOUND [None]
